FAERS Safety Report 7431946-8 (Version None)
Quarter: 2011Q2

REPORT INFORMATION
  Report Type: 
  Country: None (occurrence: None)
  Receive Date: 20110422
  Receipt Date: 20110420
  Transmission Date: 20111010
  Serious: Yes (Death, Other)
  Sender: FDA-Public Use
  Company Number: BR-PFIZER INC-2011086399

PATIENT
  Age: 75 Year
  Sex: Female

DRUGS (1)
  1. XALATAN [Suspect]
     Dosage: 3 UG, 1X/DAY (1 DROP EACH EYE, ONCE A DAY)
     Route: 047
     Dates: start: 20110201

REACTIONS (2)
  - DEATH [None]
  - INFARCTION [None]
